FAERS Safety Report 18211351 (Version 2)
Quarter: 2020Q3

REPORT INFORMATION
  Report Type: Report from Study
  Country: BE (occurrence: BE)
  Receive Date: 20200831
  Receipt Date: 20200907
  Transmission Date: 20201103
  Serious: Yes (Hospitalization)
  Sender: FDA-Public Use
  Company Number: BE-EMD SERONO-9182701

PATIENT
  Age: 67 Year
  Sex: Female

DRUGS (1)
  1. REBIF [Suspect]
     Active Substance: INTERFERON BETA-1A
     Indication: PRODUCT USED FOR UNKNOWN INDICATION
     Route: 058
     Dates: start: 20101115, end: 20200301

REACTIONS (8)
  - Asthenia [Not Recovered/Not Resolved]
  - General physical health deterioration [Recovering/Resolving]
  - Decubitus ulcer [Recovering/Resolving]
  - Drug intolerance [Recovering/Resolving]
  - Wound [Recovering/Resolving]
  - Dehydration [Recovering/Resolving]
  - Disorientation [Recovering/Resolving]
  - Breast cancer stage III [Unknown]

NARRATIVE: CASE EVENT DATE: 20191230
